FAERS Safety Report 8307001-1 (Version None)
Quarter: 2012Q2

REPORT INFORMATION
  Report Type: 
  Country: None (occurrence: None)
  Receive Date: 20120424
  Receipt Date: 20120412
  Transmission Date: 20120825
  Serious: Yes (Life-Threatening, Hospitalization, Disabling, Other)
  Sender: FDA-Public Use
  Company Number: US-JNJFOC-20100506593

PATIENT
  Age: 41 Year
  Sex: Female

DRUGS (11)
  1. RITUXAN [Suspect]
     Indication: DERMATOMYOSITIS
     Route: 042
     Dates: start: 20090813
  2. ACTONEL [Concomitant]
     Indication: PRODUCT USED FOR UNKNOWN INDICATION
  3. INFLIXIMAB [Suspect]
     Indication: DERMATOMYOSITIS
     Route: 042
     Dates: start: 20080313, end: 20080821
  4. RITUXAN [Suspect]
     Dosage: ON DAYS 1 AND 15
     Route: 042
     Dates: start: 20081013
  5. FOLIC ACID [Concomitant]
     Indication: PRODUCT USED FOR UNKNOWN INDICATION
  6. RITUXAN [Suspect]
     Dosage: ONE DAYS 1 AND 15
     Route: 042
     Dates: start: 20070701
  7. HYDROCHLOROTHIAZIDE [Concomitant]
     Indication: PRODUCT USED FOR UNKNOWN INDICATION
  8. TRAMADOL HYDROCHL [Concomitant]
     Indication: PRODUCT USED FOR UNKNOWN INDICATION
  9. RITUXAN [Suspect]
     Dosage: THIS WAS THE LAST DOSE PRIOR TO SAE ONSET LOT NUMBERS FOR THIS DOSE WAS 720648, 720649.
     Route: 042
     Dates: start: 20081027
  10. PREDNISONE TAB [Suspect]
     Indication: DERMATOMYOSITIS
     Route: 048
     Dates: start: 20060501
  11. METHOTREXATE [Suspect]
     Indication: DERMATOMYOSITIS
     Route: 058
     Dates: start: 20060601

REACTIONS (2)
  - PROGRESSIVE MULTIFOCAL LEUKOENCEPHALOPATHY [None]
  - DRUG INEFFECTIVE [None]
